FAERS Safety Report 6769374-0 (Version None)
Quarter: 2010Q2

REPORT INFORMATION
  Report Type: 
  Country: None (occurrence: None)
  Receive Date: 20100615
  Receipt Date: 20100604
  Transmission Date: 20101027
  Serious: Yes (Other)
  Sender: FDA-Public Use
  Company Number: US-PFIZER INC-2010070397

PATIENT
  Age: 49 Year
  Sex: Female

DRUGS (2)
  1. AZITHROMYCIN [Suspect]
     Indication: BRONCHITIS
  2. AZITHROMYCIN [Suspect]
     Indication: PAIN

REACTIONS (1)
  - RHABDOMYOLYSIS [None]
